FAERS Safety Report 7785997-4 (Version None)
Quarter: 2011Q3

REPORT INFORMATION
  Report Type: 
  Country: None (occurrence: None)
  Receive Date: 20110929
  Receipt Date: 20110926
  Transmission Date: 20111222
  Serious: Yes (Death, Life-Threatening, Hospitalization, Other)
  Sender: FDA-Public Use
  Company Number: GB-TEVA-285441ISR

PATIENT
  Sex: Female
  Weight: 22.4 kg

DRUGS (21)
  1. LEUCOVORIN CALCIUM [Concomitant]
  2. METRONIDAZOLE [Concomitant]
  3. METHOTREXATE [Suspect]
     Dosage: 8.5 MILLIGRAM;
     Route: 040
     Dates: start: 20110511
  4. BUSULFAN [Concomitant]
     Indication: PROPHYLAXIS AGAINST GRAFT VERSUS HOST DISEASE
     Route: 048
     Dates: start: 20110425, end: 20110428
  5. OCTREOTIDE ACETATE [Concomitant]
  6. CASPOFUNGIN ACETATE [Concomitant]
  7. IMMUNE GLOBULIN NOS [Concomitant]
  8. THIOTEPA [Concomitant]
  9. MEPERIDINE HCL [Concomitant]
  10. DEFIBROTIDE [Concomitant]
  11. DAPSONE [Concomitant]
  12. ISONIAZID [Concomitant]
  13. AMPHOTERICIN B [Concomitant]
  14. METHOTREXATE [Suspect]
     Indication: PROPHYLAXIS AGAINST GRAFT VERSUS HOST DISEASE
     Dosage: 8.5 MILLIGRAM;
     Route: 040
     Dates: start: 20110508, end: 20110508
  15. CYCLOPHOSPHAMIDE BAXTER [Concomitant]
     Indication: PROPHYLAXIS AGAINST GRAFT VERSUS HOST DISEASE
     Dosage: 1120 MILLIGRAM;
     Route: 041
     Dates: start: 20110429, end: 20110502
  16. HYDROCORTISONE [Concomitant]
  17. GANCICLOVIR [Concomitant]
  18. LINEZOLID [Concomitant]
  19. CYCLOSPORINE [Concomitant]
     Indication: PROPHYLAXIS AGAINST GRAFT VERSUS HOST DISEASE
  20. ALEMTUZUMAB [Concomitant]
     Indication: BONE MARROW TRANSPLANT
     Route: 042
  21. ACETAMINOPHEN [Concomitant]

REACTIONS (10)
  - CYTOMEGALOVIRUS INFECTION [None]
  - PULMONARY HYPERTENSION [None]
  - RESPIRATORY FAILURE [None]
  - BACTERIAL SEPSIS [None]
  - IDIOPATHIC PNEUMONIA SYNDROME [None]
  - PULMONARY HAEMORRHAGE [None]
  - VENOOCCLUSIVE DISEASE [None]
  - LIVER DISORDER [None]
  - MUCOSAL INFLAMMATION [None]
  - RENAL FAILURE [None]
